FAERS Safety Report 14662981 (Version 1)
Quarter: 2018Q1

REPORT INFORMATION
  Report Type: Report from Study
  Country: US (occurrence: US)
  Receive Date: 20180321
  Receipt Date: 20180321
  Transmission Date: 20180509
  Serious: Yes (Other)
  Sender: FDA-Public Use
  Company Number: US-ROCHE-2092525

PATIENT
  Sex: Male

DRUGS (1)
  1. VALCYTE [Suspect]
     Active Substance: VALGANCICLOVIR HYDROCHLORIDE
     Indication: CYTOMEGALOVIRUS INFECTION
     Dosage: 450MG: TAKE 2 TAB PO DAILY
     Route: 048

REACTIONS (18)
  - Platelet count decreased [Unknown]
  - Rash pruritic [Unknown]
  - Blood glucose increased [Unknown]
  - Decreased appetite [Unknown]
  - Oedema [Unknown]
  - Diarrhoea [Unknown]
  - Intentional product misuse [Unknown]
  - Viraemia [Unknown]
  - Mean cell haemoglobin increased [Unknown]
  - Neutropenia [Unknown]
  - Thrombocytopenia [Unknown]
  - Mean cell volume increased [Unknown]
  - Off label use [Unknown]
  - Erythema [Unknown]
  - Intentional product use issue [Unknown]
  - Rash [Recovered/Resolved with Sequelae]
  - Joint range of motion decreased [Unknown]
  - Pyrexia [Unknown]
